FAERS Safety Report 22062903 (Version 1)
Quarter: 2023Q1

REPORT INFORMATION
  Report Type: Spontaneous
  Country: IT (occurrence: IT)
  Receive Date: 20230306
  Receipt Date: 20230306
  Transmission Date: 20230418
  Serious: Yes (Hospitalization)
  Sender: FDA-Public Use
  Company Number: IT-EVWEB-AUR-APL-2014-02688

PATIENT
  Age: 85 Year
  Sex: Male

DRUGS (5)
  1. ALPRAZOLAM [Suspect]
     Active Substance: ALPRAZOLAM
     Indication: Sedation
     Dosage: 40 GTT,TOTAL,
     Route: 048
     Dates: start: 20140205, end: 20140205
  2. GABAPENTIN [Suspect]
     Active Substance: GABAPENTIN
     Indication: Sedation
     Dosage: 200 MG,TOTAL,
     Route: 048
     Dates: start: 20140205, end: 20140205
  3. SEROQUEL [Suspect]
     Active Substance: QUETIAPINE FUMARATE
     Indication: Sedation
     Dosage: 25 MG,DAILY,
     Route: 048
     Dates: start: 20140204, end: 20140205
  4. NEBIVOLOL HYDROCHLORIDE [Concomitant]
     Active Substance: NEBIVOLOL HYDROCHLORIDE
     Indication: Product used for unknown indication
     Dosage: 5 MG,UNK,
     Route: 065
  5. BENSERAZIDE HYDROCHLORIDE\LEVODOPA [Concomitant]
     Active Substance: BENSERAZIDE HYDROCHLORIDE\LEVODOPA
     Indication: Parkinsonism
     Dosage: UNK UNK,UNK,
     Route: 065

REACTIONS (4)
  - Erythema [Recovering/Resolving]
  - Sopor [Recovering/Resolving]
  - Off label use [Recovering/Resolving]
  - Sedation [Unknown]

NARRATIVE: CASE EVENT DATE: 20140205
